FAERS Safety Report 4730498-0 (Version None)
Quarter: 2005Q3

REPORT INFORMATION
  Report Type: 
  Country: None (occurrence: None)
  Receive Date: 20050725
  Receipt Date: 20050520
  Transmission Date: 20060218
  Serious: No
  Sender: FDA-Public Use
  Company Number: USA050598628

PATIENT
  Age: 51 Year
  Sex: Female

DRUGS (1)
  1. STRATTERA [Suspect]
     Dosage: 75 MG

REACTIONS (4)
  - ANOREXIA [None]
  - ASTHENIA [None]
  - DEPRESSION [None]
  - SEXUAL DYSFUNCTION [None]
